FAERS Safety Report 11849127 (Version 1)
Quarter: 2015Q4

REPORT INFORMATION
  Report Type: Spontaneous
  Country: US (occurrence: None)
  Receive Date: 20151217
  Receipt Date: 20151217
  Transmission Date: 20160305
  Serious: Yes (Other)
  Sender: FDA-Public Use
  Company Number: US-JNJFOC-20151114756

PATIENT

DRUGS (1)
  1. LISTERINE ZERO [Suspect]
     Active Substance: MINT\PROPYLENE GLYCOL\SORBITOL
     Indication: PRODUCT USED FOR UNKNOWN INDICATION

REACTIONS (2)
  - Intentional product misuse [None]
  - Drug dependence [None]
